FAERS Safety Report 24225483 (Version 1)
Quarter: 2024Q3

REPORT INFORMATION
  Report Type: Spontaneous
  Country: US (occurrence: US)
  Receive Date: 20240820
  Receipt Date: 20240820
  Transmission Date: 20241016
  Serious: No
  Sender: ALKEM
  Company Number: US-ALKEM LABORATORIES LIMITED-US-ALKEM-2023-14751

PATIENT

DRUGS (1)
  1. NEBIVOLOL [Suspect]
     Active Substance: NEBIVOLOL
     Indication: Blood pressure increased
     Dosage: 20 MILLIGRAM
     Route: 065

REACTIONS (6)
  - Illness [Unknown]
  - Headache [Unknown]
  - Peripheral swelling [Unknown]
  - Joint swelling [Unknown]
  - Brain fog [Unknown]
  - Drug ineffective [Unknown]
